FAERS Safety Report 19855616 (Version 1)
Quarter: 2021Q3

REPORT INFORMATION
  Report Type: Spontaneous
  Country: US (occurrence: US)
  Receive Date: 20210920
  Receipt Date: 20210920
  Transmission Date: 20211014
  Serious: Yes (Other)
  Sender: FDA-Public Use
  Company Number: US-BAYER-2021-213866

PATIENT
  Age: 69 Year

DRUGS (1)
  1. CORICIDIN HBP MAXIMUM STRENGTH COLD, COUGH AND FLU [Suspect]
     Active Substance: ACETAMINOPHEN\DEXTROMETHORPHAN HYDROBROMIDE\GUAIFENESIN
     Dosage: 1 DF
     Route: 048
     Dates: start: 20210916, end: 20210916

REACTIONS (3)
  - Choking [Unknown]
  - Feeling abnormal [Unknown]
  - Incorrect dose administered [None]

NARRATIVE: CASE EVENT DATE: 20210916
